FAERS Safety Report 14108266 (Version 5)
Quarter: 2020Q3

REPORT INFORMATION
  Report Type: Report from Study
  Country: UA (occurrence: UA)
  Receive Date: 20171019
  Receipt Date: 20180406
  Transmission Date: 20201104
  Serious: Yes (Hospitalization)
  Sender: FDA-Public Use
  Company Number: UA-ASTRAZENECA-2017SE94289

PATIENT
  Age: 23830 Day
  Sex: Male
  Weight: 115 kg

DRUGS (26)
  1. TREMELIMUMAB. [Suspect]
     Active Substance: TREMELIMUMAB
     Indication: SMALL CELL LUNG CANCER
     Route: 042
     Dates: start: 20170714, end: 20170714
  2. BISOPROLOL [Concomitant]
     Active Substance: BISOPROLOL
     Indication: MYOCARDIAL ISCHAEMIA
     Route: 048
     Dates: start: 20170511
  3. ETOPOSIDE. [Suspect]
     Active Substance: ETOPOSIDE
     Indication: SMALL CELL LUNG CANCER
     Dosage: 95 MG/M2 , EVERY THREE WEEKS
     Route: 065
     Dates: start: 20170803, end: 20170803
  4. ETOPOSIDE. [Suspect]
     Active Substance: ETOPOSIDE
     Indication: SMALL CELL LUNG CANCER
     Dosage: 95 MG/M2 , EVERY THREE WEEKS
     Route: 065
     Dates: start: 20170805, end: 20170805
  5. ETOPOSIDE. [Suspect]
     Active Substance: ETOPOSIDE
     Indication: SMALL CELL LUNG CANCER
     Dosage: 95 MG/M2 , EVERY THREE WEEKS
     Route: 065
     Dates: start: 20170825, end: 20170825
  6. HERBAL NOS [Suspect]
     Active Substance: HERBALS
     Route: 048
     Dates: start: 201708, end: 20171002
  7. REOSORBILACT [Concomitant]
     Indication: PREMEDICATION
     Dosage: 200.0ML AS REQUIRED
     Route: 042
     Dates: start: 20170714, end: 20170823
  8. ETOPOSIDE. [Suspect]
     Active Substance: ETOPOSIDE
     Indication: SMALL CELL LUNG CANCER
     Dosage: 95 MG/M2 , EVERY THREE WEEKS
     Route: 065
     Dates: start: 20170715, end: 20170715
  9. ETOPOSIDE. [Suspect]
     Active Substance: ETOPOSIDE
     Indication: SMALL CELL LUNG CANCER
     Dosage: 95 MG/M2 , EVERY THREE WEEKS
     Route: 065
     Dates: start: 20170804, end: 20170804
  10. TREMELIMUMAB. [Suspect]
     Active Substance: TREMELIMUMAB
     Indication: SMALL CELL LUNG CANCER
     Route: 042
     Dates: start: 20170823, end: 20170823
  11. DURVALUMAB. [Suspect]
     Active Substance: DURVALUMAB
     Indication: SMALL CELL LUNG CANCER
     Route: 042
     Dates: start: 20170714, end: 20170714
  12. CARBOPLATIN. [Suspect]
     Active Substance: CARBOPLATIN
     Indication: SMALL CELL LUNG CANCER
     Dosage: 5.00 AUC, EVERY THREE WEEKS
     Route: 065
     Dates: start: 20170823, end: 20170823
  13. PHOSPHOLIPIDS [Concomitant]
     Active Substance: OMEGA-3 FATTY ACIDS
     Indication: ALANINE AMINOTRANSFERASE INCREASED
     Route: 048
     Dates: start: 20170830, end: 20170913
  14. ETOPOSIDE. [Suspect]
     Active Substance: ETOPOSIDE
     Indication: SMALL CELL LUNG CANCER
     Dosage: 95 MG/M2 , EVERY THREE WEEKS
     Route: 065
     Dates: start: 20170716, end: 20170716
  15. TREMELIMUMAB. [Suspect]
     Active Substance: TREMELIMUMAB
     Indication: SMALL CELL LUNG CANCER
     Route: 042
     Dates: start: 20170803, end: 20170803
  16. DURVALUMAB. [Suspect]
     Active Substance: DURVALUMAB
     Indication: SMALL CELL LUNG CANCER
     Route: 042
     Dates: start: 20170803, end: 20170803
  17. CARBOPLATIN. [Suspect]
     Active Substance: CARBOPLATIN
     Indication: SMALL CELL LUNG CANCER
     Dosage: 6.00 AUC, EVERY THREE WEEKS
     Route: 065
     Dates: start: 20170803, end: 20170803
  18. HYDROGEN PEROXIDE. [Suspect]
     Active Substance: HYDROGEN PEROXIDE
     Route: 048
     Dates: start: 201708, end: 20171002
  19. ETOPOSIDE. [Suspect]
     Active Substance: ETOPOSIDE
     Indication: SMALL CELL LUNG CANCER
     Dosage: 95 MG/M2 , EVERY THREE WEEKS
     Route: 065
     Dates: start: 20170824, end: 20170824
  20. DURVALUMAB. [Suspect]
     Active Substance: DURVALUMAB
     Indication: SMALL CELL LUNG CANCER
     Route: 042
     Dates: start: 20170823, end: 20170823
  21. ETOPOSIDE. [Suspect]
     Active Substance: ETOPOSIDE
     Indication: SMALL CELL LUNG CANCER
     Dosage: 95 MG/M2 , EVERY THREE WEEKS
     Route: 065
     Dates: start: 20170823, end: 20170823
  22. SODIUM BICARBONATE. [Suspect]
     Active Substance: SODIUM BICARBONATE
     Route: 065
     Dates: start: 201708, end: 20171002
  23. ONDANSETRON [Concomitant]
     Active Substance: ONDANSETRON
     Indication: PREMEDICATION
     Dosage: 24.0MG AS REQUIRED
     Route: 042
     Dates: start: 20170714, end: 20170823
  24. DEXAMETHASONE. [Concomitant]
     Active Substance: DEXAMETHASONE
     Indication: PREMEDICATION
     Dosage: 16.0MG AS REQUIRED
     Route: 042
     Dates: start: 20170714, end: 20170823
  25. ETOPOSIDE. [Suspect]
     Active Substance: ETOPOSIDE
     Indication: SMALL CELL LUNG CANCER
     Dosage: 95 MG/M2 , EVERY THREE WEEKS
     Route: 065
     Dates: start: 20170714, end: 20170714
  26. CARBOPLATIN. [Suspect]
     Active Substance: CARBOPLATIN
     Indication: SMALL CELL LUNG CANCER
     Dosage: 5.00 AUC, EVERY THREE WEEKS
     Route: 065
     Dates: start: 20170714, end: 20170714

REACTIONS (1)
  - Transaminases increased [Recovering/Resolving]

NARRATIVE: CASE EVENT DATE: 20170914
